FAERS Safety Report 6080045-9 (Version None)
Quarter: 2009Q1

REPORT INFORMATION
  Report Type: 
  Country: None (occurrence: None)
  Receive Date: 20090217
  Receipt Date: 20090213
  Transmission Date: 20090719
  Serious: Yes (Hospitalization)
  Sender: FDA-Public Use
  Company Number: DE-WYE-G03112609

PATIENT
  Sex: Male
  Weight: 90 kg

DRUGS (3)
  1. TREVILOR RETARD [Suspect]
     Dosage: 10 CAPSULES (OVERDOSE AMOUNT 750 MG)
     Route: 048
     Dates: start: 20090212, end: 20090212
  2. TAVOR [Suspect]
     Dosage: 20 TABLETS (OVERDOSE AMOUNT UNKNOWN)
     Route: 048
     Dates: start: 20090212, end: 20090212
  3. ALCOHOL [Suspect]
     Dosage: 1 BOTTLE OF VODKA (OVERDOSE AMOUNT UNKNOWN)
     Route: 048
     Dates: start: 20090212, end: 20090212

REACTIONS (4)
  - DRUG ABUSE [None]
  - FATIGUE [None]
  - INTENTIONAL OVERDOSE [None]
  - TACHYCARDIA [None]
